FAERS Safety Report 4420324-1 (Version None)
Quarter: 2004Q2

REPORT INFORMATION
  Report Type: 
  Country: None (occurrence: None)
  Receive Date: 20040622
  Receipt Date: 20030710
  Transmission Date: 20050107
  Serious: Yes (Other)
  Sender: FDA-Public Use
  Company Number: US-JNJFOC-20030703234

PATIENT
  Sex: Female

DRUGS (5)
  1. HALDOL [Suspect]
     Indication: SOCIAL AVOIDANT BEHAVIOUR
     Dosage: 50 MG, 1 IN 1 DAY
  2. LITHIUM CARBONATE [Concomitant]
  3. THORAZINE [Concomitant]
  4. MELLARIL [Concomitant]
  5. PROLIXIN [Concomitant]

REACTIONS (2)
  - CONVULSION [None]
  - HALLUCINATION [None]
